FAERS Safety Report 5693142-4 (Version None)
Quarter: 2008Q2

REPORT INFORMATION
  Report Type: 
  Country: None (occurrence: None)
  Receive Date: 20080402
  Receipt Date: 20080402
  Transmission Date: 20081010
  Serious: Yes (Other)
  Sender: FDA-Public Use
  Company Number: None

PATIENT
  Age: 8 Year
  Sex: Male
  Weight: 39.0093 kg

DRUGS (1)
  1. SINGULAIR [Suspect]
     Indication: ASTHMA
     Dosage: 5MG 1 X DAY PO
     Route: 048
     Dates: start: 20080325, end: 20080326

REACTIONS (4)
  - CRYING [None]
  - FEAR [None]
  - HALLUCINATION [None]
  - PANIC REACTION [None]
